FAERS Safety Report 5626787-8 (Version None)
Quarter: 2008Q1

REPORT INFORMATION
  Report Type: 
  Country: None (occurrence: None)
  Receive Date: 20080214
  Receipt Date: 20080206
  Transmission Date: 20080703
  Serious: Yes (Life-Threatening, Other)
  Sender: FDA-Public Use
  Company Number: GB-PFIZER INC-2008012325

PATIENT
  Age: 38 Year
  Sex: Female

DRUGS (5)
  1. AMLODIPINE [Suspect]
     Route: 048
     Dates: start: 20050609, end: 20050810
  2. AMLODIPINE [Suspect]
     Route: 048
     Dates: start: 20050811, end: 20080118
  3. BENDROFLUMETHIAZIDE [Concomitant]
     Route: 048
  4. CODEINE PHOSPHATE [Concomitant]
     Route: 048
  5. VALSARTAN [Concomitant]
     Route: 048

REACTIONS (2)
  - ELECTROCARDIOGRAM QT PROLONGED [None]
  - VENTRICULAR EXTRASYSTOLES [None]
